FAERS Safety Report 11063982 (Version 3)
Quarter: 2015Q4

REPORT INFORMATION
  Report Type: Report from Study
  Country: US (occurrence: US)
  Receive Date: 20150424
  Receipt Date: 20151012
  Transmission Date: 20160304
  Serious: Yes (Hospitalization)
  Sender: FDA-Public Use
  Company Number: US-PFIZER INC-2015131621

PATIENT
  Age: 81 Year
  Sex: Female
  Weight: 63 kg

DRUGS (3)
  1. XGEVA [Suspect]
     Active Substance: DENOSUMAB
  2. PALBOCICLIB [Suspect]
     Active Substance: PALBOCICLIB
     Indication: BREAST CANCER
     Dosage: 21 DAYS OUT OF 28 DAY CYCLE
     Route: 048
     Dates: start: 20150226, end: 20150401
  3. LETROZOLE. [Concomitant]
     Active Substance: LETROZOLE
     Dosage: EVERY DAY
     Route: 048
     Dates: start: 20150226, end: 20150401

REACTIONS (1)
  - Osteomyelitis [Recovered/Resolved with Sequelae]

NARRATIVE: CASE EVENT DATE: 20150414
